FAERS Safety Report 10671757 (Version 1)
Quarter: 2014Q4

REPORT INFORMATION
  Report Type: Spontaneous
  Country: CA (occurrence: None)
  Receive Date: 20141222
  Receipt Date: 20141222
  Transmission Date: 20150529
  Serious: Yes (Disabling)
  Sender: FDA-Public Use
  Company Number: None

PATIENT
  Age: 35 Year
  Sex: Male
  Weight: 77.11 kg

DRUGS (1)
  1. MOXIFLOXACIN 500 MG BAYER [Suspect]
     Active Substance: MOXIFLOXACIN
     Indication: SINUSITIS
     Dosage: 10 PILLS, GAKEN BY MOUTH
     Dates: start: 20140317, end: 20140327

REACTIONS (13)
  - Neuralgia [None]
  - Alopecia [None]
  - Panic attack [None]
  - Tinnitus [None]
  - Tremor [None]
  - Skin atrophy [None]
  - Tendon pain [None]
  - Palpitations [None]
  - Photopsia [None]
  - Anxiety [None]
  - Amnesia [None]
  - Pruritus [None]
  - Vitreous floaters [None]

NARRATIVE: CASE EVENT DATE: 20140318
